FAERS Safety Report 5199306-0 (Version None)
Quarter: 2006Q4

REPORT INFORMATION
  Report Type: 
  Country: None (occurrence: None)
  Receive Date: 20061229
  Receipt Date: 20061215
  Transmission Date: 20070319
  Serious: Yes (Hospitalization)
  Sender: FDA-Public Use
  Company Number: 061218-0001131

PATIENT
  Age: 23 Year
  Sex: Female

DRUGS (2)
  1. DACTINOMYCIN [Suspect]
     Indication: CHORIOCARCINOMA
  2. METHOTREXATE [Suspect]
     Indication: CHORIOCARCINOMA

REACTIONS (6)
  - EXFOLIATIVE RASH [None]
  - HYPERKERATOSIS [None]
  - MUCOSAL INFLAMMATION [None]
  - SKIN HYPERPIGMENTATION [None]
  - SKIN LESION [None]
  - SKIN TOXICITY [None]
